FAERS Safety Report 8049852-7 (Version None)
Quarter: 2012Q1

REPORT INFORMATION
  Report Type: 
  Country: None (occurrence: None)
  Receive Date: 20120111
  Receipt Date: 20110622
  Transmission Date: 20120608
  Serious: Yes (Other)
  Sender: FDA-Public Use
  Company Number: 2011-03708

PATIENT
  Age: 21 Year
  Sex: Female

DRUGS (2)
  1. TUBERSOL [Suspect]
     Indication: TUBERCULIN TEST
     Dosage: ^RIGHT^,I.D.
     Dates: start: 20110621, end: 20110621
  2. ADACEL (TD2CP) [Suspect]
     Indication: IMMUNISATION
     Dosage: I.M.
     Route: 030
     Dates: start: 20110621, end: 20110621

REACTIONS (3)
  - BACK PAIN [None]
  - PAIN [None]
  - NAUSEA [None]
